FAERS Safety Report 5755818-X (Version None)
Quarter: 2008Q2

REPORT INFORMATION
  Report Type: 
  Country: None (occurrence: None)
  Receive Date: 20080528
  Receipt Date: 20080519
  Transmission Date: 20081010
  Serious: Yes (Other)
  Sender: FDA-Public Use
  Company Number: 2008SP008639

PATIENT
  Age: 11 Year
  Sex: Male
  Weight: 40.8237 kg

DRUGS (4)
  1. CLARITIN [Suspect]
     Indication: NASAL CONGESTION
     Dosage: 10 MG;QD;PO
     Route: 048
     Dates: start: 20080503, end: 20080505
  2. CLARITIN [Suspect]
     Indication: RHINORRHOEA
     Dosage: 10 MG;QD;PO
     Route: 048
     Dates: start: 20080503, end: 20080505
  3. CLARITIN [Suspect]
     Indication: SNEEZING
     Dosage: 10 MG;QD;PO
     Route: 048
     Dates: start: 20080503, end: 20080505
  4. VITAMIN CAP [Concomitant]

REACTIONS (5)
  - ABNORMAL BEHAVIOUR [None]
  - AGGRESSION [None]
  - FEAR [None]
  - SLEEP DISORDER [None]
  - SLEEP TERROR [None]
